FAERS Safety Report 18485895 (Version 1)
Quarter: 2020Q4

REPORT INFORMATION
  Report Type: Spontaneous
  Country: DE (occurrence: DE)
  Receive Date: 20201110
  Receipt Date: 20201110
  Transmission Date: 20210114
  Serious: Yes (Hospitalization, Other)
  Sender: FDA-Public Use
  Company Number: DE-HRARD-202000857

PATIENT
  Sex: Female

DRUGS (9)
  1. METYRAPONE [Suspect]
     Active Substance: METYRAPONE
     Indication: EXPOSURE DURING PREGNANCY
     Route: 064
  2. METOPROLOL. [Concomitant]
     Active Substance: METOPROLOL
     Indication: EXPOSURE DURING PREGNANCY
     Dosage: 95 MG BID
     Route: 064
  3. METHYLDOPA. [Concomitant]
     Active Substance: METHYLDOPA
     Indication: EXPOSURE DURING PREGNANCY
     Route: 064
  4. HYDRALAZINE [Concomitant]
     Active Substance: HYDRALAZINE HYDROCHLORIDE
     Indication: EXPOSURE DURING PREGNANCY
     Dosage: STOPPED SEVERAL DAYS FOLLOWING INITIATION OF TREATMENT WITH METYRAPONE AND SPIRONOLACTONE
     Route: 064
  5. SPIRONOLACTONE. [Concomitant]
     Active Substance: SPIRONOLACTONE
     Indication: EXPOSURE DURING PREGNANCY
     Dosage: 100 MG BID
     Route: 064
  6. SPIRONOLACTONE. [Concomitant]
     Active Substance: SPIRONOLACTONE
     Indication: EXPOSURE DURING PREGNANCY
     Dosage: 25 MG TID
     Route: 064
  7. NIFEDIPINE. [Concomitant]
     Active Substance: NIFEDIPINE
     Indication: EXPOSURE DURING PREGNANCY
     Dosage: 20 MG BID
     Route: 064
  8. HYDROCHLOROTHIAZIDE. [Concomitant]
     Active Substance: HYDROCHLOROTHIAZIDE
     Indication: EXPOSURE DURING PREGNANCY
     Dosage: 12.5 MG BID
     Route: 064
  9. URAPIDIL [Concomitant]
     Active Substance: URAPIDIL
     Indication: EXPOSURE DURING PREGNANCY
     Dosage: STOPPED SEVERAL DAYS FOLLOWING INITIATION OF TREATMENT WITH METYRAPONE AND SPIRONOLACTONE
     Route: 064

REACTIONS (5)
  - Neonatal hyponatraemia [Recovered/Resolved]
  - Low birth weight baby [Recovered/Resolved]
  - Premature baby [Recovered/Resolved]
  - Hypoglycaemia neonatal [Recovered/Resolved]
  - Maternal exposure during pregnancy [Recovered/Resolved]
